FAERS Safety Report 7365259-X (Version None)
Quarter: 2011Q1

REPORT INFORMATION
  Report Type: 
  Country: None (occurrence: None)
  Receive Date: 20110322
  Receipt Date: 20110314
  Transmission Date: 20110831
  Serious: Yes (Hospitalization)
  Sender: FDA-Public Use
  Company Number: US-BIOGENIDEC-2011BI009909

PATIENT
  Age: 27 Year
  Sex: Female

DRUGS (1)
  1. TYSABRI [Suspect]
     Indication: MULTIPLE SCLEROSIS
     Route: 042
     Dates: start: 20091118

REACTIONS (8)
  - OSTEOMYELITIS [None]
  - PAIN [None]
  - ADVERSE DRUG REACTION [None]
  - FATIGUE [None]
  - CENTRAL NERVOUS SYSTEM LESION [None]
  - STAPHYLOCOCCAL INFECTION [None]
  - MUSCLE SPASTICITY [None]
  - MULTIPLE SCLEROSIS RELAPSE [None]
